FAERS Safety Report 25979220 (Version 1)
Quarter: 2025Q4

REPORT INFORMATION
  Report Type: Spontaneous
  Country: US (occurrence: None)
  Receive Date: 20251029
  Receipt Date: 20251029
  Transmission Date: 20260117
  Serious: Yes (Hospitalization)
  Sender: FDA-CTU
  Company Number: None

PATIENT
  Age: 76 Year
  Sex: Female
  Weight: 98.88 kg

DRUGS (16)
  1. OZEMPIC [Suspect]
     Active Substance: SEMAGLUTIDE
     Indication: Weight control
     Dosage: OTHER FREQUENCY : EVERY THURSDAY;?
     Route: 058
     Dates: start: 20240620, end: 20241023
  2. FERROUS SULFATE [Concomitant]
     Active Substance: FERROUS SULFATE
  3. MELATONIN [Concomitant]
     Active Substance: MELATONIN
  4. TYLENOL [Concomitant]
     Active Substance: ACETAMINOPHEN
  5. SENNA [Concomitant]
     Active Substance: SENNOSIDES
  6. Multivit with minerals [Concomitant]
  7. ENTRESTO [Concomitant]
     Active Substance: SACUBITRIL\VALSARTAN
  8. ALLOPURINOL [Concomitant]
     Active Substance: ALLOPURINOL
  9. METOPROLOL SUCCINATE [Concomitant]
     Active Substance: METOPROLOL SUCCINATE
  10. PRAVASTATIN [Concomitant]
     Active Substance: PRAVASTATIN
  11. JARDIANCE [Concomitant]
     Active Substance: EMPAGLIFLOZIN
  12. BUMEX [Concomitant]
     Active Substance: BUMETANIDE
  13. BASAGLAR [Concomitant]
     Active Substance: INSULIN GLARGINE
  14. ELIQUIS [Concomitant]
     Active Substance: APIXABAN
  15. SPIRONOLACTONE [Concomitant]
     Active Substance: SPIRONOLACTONE
  16. OMEPRAZOLE [Concomitant]
     Active Substance: OMEPRAZOLE

REACTIONS (6)
  - Pruritus [None]
  - Nausea [None]
  - Vomiting [None]
  - Cyst [None]
  - Procedural pain [None]
  - Pain [None]

NARRATIVE: CASE EVENT DATE: 20240701
